FAERS Safety Report 17505821 (Version 1)
Quarter: 2020Q1

REPORT INFORMATION
  Report Type: Spontaneous
  Country: US (occurrence: US)
  Receive Date: 20200305
  Receipt Date: 20200305
  Transmission Date: 20200409
  Serious: No
  Sender: FDA-Public Use
  Company Number: US-TARO-2019TAR00394

PATIENT
  Sex: Female
  Weight: 70.3 kg

DRUGS (4)
  1. ENALAPRIL MALEATE TABLETS USP 20 MG [Suspect]
     Active Substance: ENALAPRIL MALEATE
     Dosage: 20 MG, 2X/DAY
     Route: 048
     Dates: end: 201810
  2. HYDROCHLOROTHIAZIDE. [Concomitant]
     Active Substance: HYDROCHLOROTHIAZIDE
     Dosage: 25 MG
  3. ATORVASTATIN [Concomitant]
     Active Substance: ATORVASTATIN
     Dosage: 5 MG
  4. ENALAPRIL MALEATE TABLETS USP 20 MG [Suspect]
     Active Substance: ENALAPRIL MALEATE
     Indication: HYPERTENSION
     Dosage: 20 MG, 2X/DAY
     Route: 048
     Dates: start: 201810

REACTIONS (5)
  - Tongue discomfort [Not Recovered/Not Resolved]
  - Oral pain [Not Recovered/Not Resolved]
  - Dysgeusia [Not Recovered/Not Resolved]
  - Glossodynia [Not Recovered/Not Resolved]
  - Oral discomfort [Not Recovered/Not Resolved]

NARRATIVE: CASE EVENT DATE: 2017
